FAERS Safety Report 10177660 (Version 2)
Quarter: 2014Q2

REPORT INFORMATION
  Report Type: Report from Study
  Country: US (occurrence: US)
  Receive Date: 20140516
  Receipt Date: 20140528
  Transmission Date: 20141212
  Serious: Yes (Hospitalization)
  Sender: FDA-Public Use
  Company Number: US-ACTELION-A-US2014-98840

PATIENT
  Age: 2 Year
  Sex: Female

DRUGS (3)
  1. TRACLEER [Suspect]
     Indication: PULMONARY ARTERIAL HYPERTENSION
     Dosage: 31.25 MG, BID
     Route: 048
     Dates: start: 20140307
  2. TRACLEER [Suspect]
     Dosage: 15.6 MG, BID
     Route: 048
     Dates: start: 20140207, end: 20140306
  3. SILDENAFIL [Concomitant]

REACTIONS (1)
  - International normalised ratio increased [Recovering/Resolving]
